FAERS Safety Report 20835892 (Version 1)
Quarter: 2022Q2

REPORT INFORMATION
  Report Type: Report from Study
  Country: US (occurrence: None)
  Receive Date: 20220516
  Receipt Date: 20220516
  Transmission Date: 20220721
  Serious: Yes (Hospitalization, Other)
  Sender: FDA-Public Use
  Company Number: 2022A181491

PATIENT
  Age: 28616 Day
  Sex: Female

DRUGS (1)
  1. TAGRISSO [Suspect]
     Active Substance: OSIMERTINIB
     Indication: Malignant respiratory tract neoplasm
     Route: 048
     Dates: start: 20200515

REACTIONS (3)
  - Pancreatitis [Recovered/Resolved]
  - Alopecia [Unknown]
  - Onycholysis [Unknown]

NARRATIVE: CASE EVENT DATE: 20220420
